FAERS Safety Report 21313212 (Version 2)
Quarter: 2022Q3

REPORT INFORMATION
  Report Type: Spontaneous
  Country: NZ (occurrence: NZ)
  Receive Date: 20220909
  Receipt Date: 20220928
  Transmission Date: 20221027
  Serious: Yes (Hospitalization)
  Sender: FDA-Public Use
  Company Number: NZ-BEH-2022149179

PATIENT
  Age: 16 Year
  Sex: Male

DRUGS (2)
  1. PRIVIGEN [Suspect]
     Active Substance: HUMAN IMMUNOGLOBULIN G
     Indication: Acute lymphocytic leukaemia recurrent
     Dosage: 188.15 MILLILITER, 5G VIAL
     Route: 042
     Dates: start: 20220823, end: 20220823
  2. PRIVIGEN [Suspect]
     Active Substance: HUMAN IMMUNOGLOBULIN G
     Indication: T-cell type acute leukaemia

REACTIONS (2)
  - Chills [Recovered/Resolved]
  - Body temperature decreased [Recovered/Resolved]

NARRATIVE: CASE EVENT DATE: 20220823
